APPROVED DRUG PRODUCT: OPTICROM
Active Ingredient: CROMOLYN SODIUM
Strength: 4% **Federal Register determination that product was not discontinued or withdrawn for safety or effectiveness reasons**
Dosage Form/Route: SOLUTION/DROPS;OPHTHALMIC
Application: N018155 | Product #001
Applicant: ALLERGAN INC
Approved: Oct 3, 1984 | RLD: Yes | RS: No | Type: DISCN